FAERS Safety Report 7712400-2 (Version None)
Quarter: 2011Q3

REPORT INFORMATION
  Report Type: 
  Country: None (occurrence: None)
  Receive Date: 20110826
  Receipt Date: 20110822
  Transmission Date: 20111222
  Serious: Yes (Life-Threatening, Hospitalization)
  Sender: FDA-Public Use
  Company Number: US-ROCHE-798620

PATIENT
  Age: 50 Year
  Sex: Male
  Weight: 55 kg

DRUGS (6)
  1. HYDROMORPHONE HCL [Suspect]
     Indication: PAIN
     Route: 065
  2. DIAZEPAM [Suspect]
     Route: 065
  3. DIAZEPAM [Suspect]
     Dosage: DOSE DOUBLED.
     Route: 065
  4. ALPRAZOLAM [Suspect]
     Indication: ANXIETY DISORDER
     Route: 065
  5. HYDROCODONE BITARTRATE [Concomitant]
  6. DIAZEPAM [Suspect]
     Route: 065

REACTIONS (6)
  - INSOMNIA [None]
  - MYOCARDIAL INFARCTION [None]
  - TACHYCARDIA [None]
  - FATIGUE [None]
  - EYE MOVEMENT DISORDER [None]
  - WEIGHT INCREASED [None]
